FAERS Safety Report 6896217-7 (Version None)
Quarter: 2010Q3

REPORT INFORMATION
  Report Type: 
  Country: None (occurrence: None)
  Receive Date: 20100802
  Receipt Date: 20100726
  Transmission Date: 20110219
  Serious: Yes (Congenital Anomaly)
  Sender: FDA-Public Use
  Company Number: A0872579A

PATIENT
  Sex: Female

DRUGS (3)
  1. COMBIVIR [Suspect]
     Indication: HIV INFECTION
     Dates: start: 20030321, end: 20030821
  2. VIRACEPT [Suspect]
     Indication: HIV INFECTION
     Dates: start: 20030321, end: 20030821
  3. FERROUS SULFATE [Concomitant]

REACTIONS (4)
  - ATRIAL SEPTAL DEFECT [None]
  - CONGENITAL TRICUSPID VALVE STENOSIS [None]
  - DRUG EXPOSURE DURING PREGNANCY [None]
  - PATENT DUCTUS ARTERIOSUS [None]
